FAERS Safety Report 9852640 (Version 2)
Quarter: 2014Q3

REPORT INFORMATION
  Report Type: Spontaneous
  Country: US (occurrence: US)
  Receive Date: 20140129
  Receipt Date: 20140728
  Transmission Date: 20150326
  Serious: Yes (Life-Threatening, Hospitalization, Disabling, Other)
  Sender: FDA-Public Use
  Company Number: US-009507513-1401USA011478

PATIENT
  Sex: Female

DRUGS (1)
  1. NUVARING [Suspect]
     Active Substance: ETHINYL ESTRADIOL\ETONOGESTREL
     Indication: CONTRACEPTION
     Dosage: UNK
     Route: 067
     Dates: start: 201210, end: 20130123

REACTIONS (9)
  - Menstruation delayed [Unknown]
  - Depression [Unknown]
  - Pulmonary embolism [Unknown]
  - Obesity [Unknown]
  - Adenoidectomy [Unknown]
  - Deep vein thrombosis [Unknown]
  - Tonsillectomy [Unknown]
  - Wisdom teeth removal [Unknown]
  - Anxiety [Unknown]

NARRATIVE: CASE EVENT DATE: 201301
